FAERS Safety Report 14149302 (Version 1)
Quarter: 2017Q4

REPORT INFORMATION
  Report Type: Spontaneous
  Country: AU (occurrence: AU)
  Receive Date: 20171101
  Receipt Date: 20171101
  Transmission Date: 20180321
  Serious: Yes (Other)
  Sender: FDA-Public Use
  Company Number: AU-MYLANLABS-2017M1067800

PATIENT
  Sex: Female

DRUGS (1)
  1. TAMATE [Suspect]
     Active Substance: TOPIRAMATE
     Indication: SEIZURE
     Dosage: UNK

REACTIONS (3)
  - Product substitution issue [Unknown]
  - Seizure [Unknown]
  - Drug ineffective [Unknown]
